FAERS Safety Report 6235060-9 (Version None)
Quarter: 2009Q2

REPORT INFORMATION
  Report Type: 
  Country: None (occurrence: None)
  Receive Date: 20090618
  Receipt Date: 20090609
  Transmission Date: 20091009
  Serious: No
  Sender: FDA-Public Use
  Company Number: PHEH2009US05990

PATIENT
  Sex: Male

DRUGS (9)
  1. TASIGNA [Suspect]
     Indication: CHRONIC MYELOID LEUKAEMIA
     Dosage: 400 MG, Q12H
     Route: 048
     Dates: start: 20081101, end: 20081201
  2. ASCORBIC ACID [Concomitant]
  3. PROTONIX [Concomitant]
  4. PROCRIT                            /00909301/ [Concomitant]
  5. DARVOCET-N 100 [Concomitant]
  6. LASIX [Concomitant]
  7. PHENERGAN ^AVENTIS PHARMA^ [Concomitant]
  8. COUMADIN [Concomitant]
  9. MEDROL [Concomitant]

REACTIONS (1)
  - MEDICATION ERROR [None]
